FAERS Safety Report 7228716-2 (Version None)
Quarter: 2011Q1

REPORT INFORMATION
  Report Type: 
  Country: None (occurrence: None)
  Receive Date: 20110117
  Receipt Date: 20110111
  Transmission Date: 20110831
  Serious: No
  Sender: FDA-Public Use
  Company Number: US-BIOGENIDEC-2011BI001480

PATIENT
  Sex: Female

DRUGS (4)
  1. CLONAZEPAM [Concomitant]
  2. AVONEX [Concomitant]
     Indication: MULTIPLE SCLEROSIS
     Route: 030
  3. PROZAC [Concomitant]
  4. TYSABRI [Suspect]
     Indication: MULTIPLE SCLEROSIS
     Route: 042
     Dates: start: 20070622

REACTIONS (7)
  - BLOOD PRESSURE DECREASED [None]
  - PAIN [None]
  - BLADDER SPASM [None]
  - CHILLS [None]
  - DECUBITUS ULCER [None]
  - MUSCLE SPASMS [None]
  - SKIN DISORDER [None]
